FAERS Safety Report 15231529 (Version 1)
Quarter: 2018Q3

REPORT INFORMATION
  Report Type: Spontaneous
  Country: US (occurrence: US)
  Receive Date: 20180708
  Receipt Date: 20180708
  Transmission Date: 20181010
  Serious: No
  Sender: FDA-Public Use
  Company Number: None

PATIENT
  Age: 65 Year
  Sex: Male
  Weight: 80.1 kg

DRUGS (2)
  1. AMLODIPINE BESYLATE TABLETS, USP 10 MG* [Suspect]
     Active Substance: AMLODIPINE BESYLATE
     Indication: HYPERTENSION
     Dosage: ?          QUANTITY:1 TABLET(S);?
     Route: 048
     Dates: start: 20150415
  2. BABY ASA [Concomitant]
     Active Substance: ASPIRIN

REACTIONS (4)
  - Choking [None]
  - Eye pain [None]
  - Foreign body in respiratory tract [None]
  - Oropharyngeal pain [None]

NARRATIVE: CASE EVENT DATE: 20180707
